FAERS Safety Report 9285554 (Version 1)
Quarter: 2013Q2

REPORT INFORMATION
  Report Type: Spontaneous
  Country: US (occurrence: None)
  Receive Date: 20130510
  Receipt Date: 20130510
  Transmission Date: 20140414
  Serious: Yes (Hospitalization)
  Sender: FDA-Public Use
  Company Number: None

PATIENT
  Age: 58 Year
  Sex: Female
  Weight: 65.77 kg

DRUGS (2)
  1. SUPREP BOWEL PREP KIT [Suspect]
     Indication: BOWEL PREPARATION
     Dosage: ONE BOTTLE ONCE PO
     Dates: start: 20130425, end: 20130425
  2. SUPREP BOWEL PREP KIT [Suspect]
     Indication: COLONOSCOPY
     Dosage: ONE BOTTLE ONCE PO
     Dates: start: 20130425, end: 20130425

REACTIONS (4)
  - Unresponsive to stimuli [None]
  - Blood sodium decreased [None]
  - Agitation [None]
  - Product contamination [None]
